FAERS Safety Report 9172456 (Version 1)
Quarter: 2012Q4

REPORT INFORMATION
  Report Type: 
  Country: NO (occurrence: NO)
  Receive Date: 20120911
  Receipt Date: 20120911
  Transmission Date: 20130627
  Serious: Yes (Death)
  Sender: FDA-Public Use
  Company Number: NO-WATSON-2012-15668

PATIENT
  Age: 68 Year
  Sex: Male

DRUGS (1)
  1. METFORMIN HYDROCHLORIDE (UNKNOWN) [Suspect]
     Indication: PRODUCT USED FOR UNKNOWN INDICATION
     Dosage: UNK
     Route: 065

REACTIONS (2)
  - Multi-organ failure [Fatal]
  - Lactic acidosis [Fatal]
